FAERS Safety Report 14275742 (Version 17)
Quarter: 2018Q4

REPORT INFORMATION
  Report Type: Spontaneous
  Country: DE (occurrence: DE)
  Receive Date: 20171212
  Receipt Date: 20181010
  Transmission Date: 20190204
  Serious: Yes (Hospitalization, Other)
  Sender: FDA-Public Use
  Company Number: DE-PFIZER INC-2017523604

PATIENT
  Age: 73 Year
  Sex: Male
  Weight: 82 kg

DRUGS (11)
  1. ASPIRIN. [Concomitant]
     Active Substance: ASPIRIN
     Dosage: 100 MG, 1X/DAY,TAKING SINCE LONGER TIME
     Route: 048
  2. DISTRANEURIN [CLOMETHIAZOLE] [Suspect]
     Active Substance: CLOMETHIAZOLE
     Dosage: UNK
     Route: 048
  3. ATORVASTATIN [Concomitant]
     Active Substance: ATORVASTATIN
     Dosage: 20 MG, 1X/DAY, TAKING SINCE LONGER TIME
     Route: 048
  4. ALLOPURINOL. [Concomitant]
     Active Substance: ALLOPURINOL
     Dosage: 300 MG, 1X/DAY,TAKING SINCE LONGER TIME
     Route: 048
  5. TAVOR (LORAZEPAM) [Suspect]
     Active Substance: LORAZEPAM
     Dosage: 1 MG, DAILY (DOSAGE FORM: UNSPECIFIED)
     Route: 048
     Dates: start: 20170913
  6. METFORMIN [Concomitant]
     Active Substance: METFORMIN HYDROCHLORIDE
     Dosage: 2000 MG, 1X/DAY,TAKING SINCE LONGER TIME
     Route: 048
  7. RISPERIDONE. [Suspect]
     Active Substance: RISPERIDONE
     Dosage: 1 MG, DAILY  (DOSAGE FORM: UNSPECIFIED)
     Route: 048
     Dates: start: 20170913, end: 20170913
  8. KEPPRA [Concomitant]
     Active Substance: LEVETIRACETAM
     Dosage: 1000 MG, 1X/DAY,TAKING SINCE LONGER TIME
     Route: 048
  9. RAMIPRIL. [Suspect]
     Active Substance: RAMIPRIL
     Dosage: 5 MG, DAILY (DOSAGE FORM: UNSPECIFIED)
     Route: 048
  10. PIPAMPERONE [Suspect]
     Active Substance: PIPAMPERONE
     Dosage: 60 MG, DAILY, DOSAGE FORM: UNSPECIFIED
     Route: 048
     Dates: end: 201709
  11. METOPROLOL TARTRATE. [Suspect]
     Active Substance: METOPROLOL TARTRATE
     Dosage: 47.5 MG, DAILY, DOSAGE FORM: UNSPECIFIED
     Route: 048

REACTIONS (6)
  - Musculoskeletal pain [Unknown]
  - Wound [Unknown]
  - Haemorrhage [Unknown]
  - Blood sodium decreased [Unknown]
  - Fall [Recovered/Resolved]
  - Drug withdrawal convulsions [Unknown]

NARRATIVE: CASE EVENT DATE: 20170913
